FAERS Safety Report 13861735 (Version 1)
Quarter: 2017Q3

REPORT INFORMATION
  Report Type: Report from Study
  Country: CA (occurrence: CA)
  Receive Date: 20170811
  Receipt Date: 20170811
  Transmission Date: 20171127
  Serious: Yes (Hospitalization, Other)
  Sender: FDA-Public Use
  Company Number: CA-TERSERA THERAPEUTICS, LLC-2024527

PATIENT
  Age: 70 Year
  Sex: Male

DRUGS (6)
  1. ADALAT CC [Concomitant]
     Active Substance: NIFEDIPINE
  2. BICALUTAMIDE. [Concomitant]
     Active Substance: BICALUTAMIDE
  3. ACEBUTOLOL HYDROCHLORIDE. [Concomitant]
     Active Substance: ACEBUTOLOL HYDROCHLORIDE
  4. ATORVASTATIN CALCIUM. [Concomitant]
     Active Substance: ATORVASTATIN CALCIUM
  5. ZOLADEX [Suspect]
     Active Substance: GOSERELIN ACETATE
     Indication: PROSTATE CANCER
     Route: 058
     Dates: start: 20100510
  6. CHLOROBUTANOL, NAPHAZOLINE NITRATE, PHENYLEPHRINE HYDROCHLORIDE [Concomitant]

REACTIONS (3)
  - Calculus bladder [Recovered/Resolved]
  - Haematuria [Unknown]
  - Urinary incontinence [Not Recovered/Not Resolved]

NARRATIVE: CASE EVENT DATE: 20170501
